FAERS Safety Report 25980393 (Version 1)
Quarter: 2025Q4

REPORT INFORMATION
  Report Type: Spontaneous
  Country: EU (occurrence: EU)
  Receive Date: 20251030
  Receipt Date: 20251030
  Transmission Date: 20260117
  Serious: Yes (Other)
  Sender: PFIZER
  Company Number: EU-PFIZER INC-202500213248

PATIENT
  Age: 71 Year
  Sex: Female

DRUGS (1)
  1. NOVATREX (METHOTREXATE) [Suspect]
     Active Substance: METHOTREXATE SODIUM
     Indication: Arthritis
     Dosage: UNK
     Dates: start: 2009

REACTIONS (3)
  - Neoplasm malignant [Unknown]
  - Skin disorder [Unknown]
  - Dermal cyst [Unknown]
